FAERS Safety Report 5871103-X (Version None)
Quarter: 2008Q3

REPORT INFORMATION
  Report Type: 
  Country: None (occurrence: None)
  Receive Date: 20080904
  Receipt Date: 20080826
  Transmission Date: 20090109
  Serious: Yes (Hospitalization)
  Sender: FDA-Public Use
  Company Number: US-PFIZER INC-2008068610

PATIENT
  Age: 50 Year
  Sex: Female
  Weight: 129.2 kg

DRUGS (15)
  1. ENOXAPARIN SODIUM [Suspect]
     Indication: THROMBOSIS PROPHYLAXIS
  2. LANTUS [Concomitant]
  3. INSULIN LISPRO [Concomitant]
  4. METOCLOPRAMIDE [Concomitant]
  5. SUCRALFATE [Concomitant]
  6. DICYCLOMINE [Concomitant]
  7. PANTOPRAZOLE [Concomitant]
  8. POLYETHYLENE GLYCOL [Concomitant]
  9. METOPROLOL TARTRATE [Concomitant]
  10. TORSEMIDE [Concomitant]
  11. POTASSIUM CHLORIDE [Concomitant]
  12. BUPROPION HCL [Concomitant]
  13. CYCLOBENZAPRINE HCL [Concomitant]
  14. OXYCODONE HCL [Concomitant]
  15. HYDROCODONE BITARTRATE + ACETAMINOPHEN [Concomitant]

REACTIONS (2)
  - DEEP VEIN THROMBOSIS [None]
  - HEPARIN-INDUCED THROMBOCYTOPENIA [None]
